FAERS Safety Report 17076131 (Version 3)
Quarter: 2023Q2

REPORT INFORMATION
  Report Type: Report from Study
  Country: NL (occurrence: NL)
  Receive Date: 20191126
  Receipt Date: 20230531
  Transmission Date: 20230722
  Serious: Yes (Hospitalization, Other)
  Sender: FDA-Public Use
  Company Number: NL-MYLANLABS-2019M1113728

PATIENT
  Sex: Male

DRUGS (1)
  1. GLATIRAMER ACETATE [Suspect]
     Active Substance: GLATIRAMER ACETATE
     Indication: Multiple sclerosis
     Dosage: 20 MILLIGRAM, QD, 1.00 X PER DAY
     Route: 058

REACTIONS (4)
  - Cerebral infarction [Unknown]
  - Multiple sclerosis relapse [Not Recovered/Not Resolved]
  - General physical health deterioration [Unknown]
  - Speech disorder [Unknown]

NARRATIVE: CASE EVENT DATE: 20190610
